FAERS Safety Report 4480585-X (Version None)
Quarter: 2004Q4

REPORT INFORMATION
  Report Type: 
  Country: None (occurrence: None)
  Receive Date: 20041019
  Receipt Date: 20041006
  Transmission Date: 20050328
  Serious: Yes (Hospitalization)
  Sender: FDA-Public Use
  Company Number: 2004237463JP

PATIENT
  Age: 74 Year
  Sex: Female

DRUGS (10)
  1. CABERGOLINE [Suspect]
     Indication: PARKINSON'S DISEASE
     Dosage: 1 MG/DAY, ORAL
     Route: 048
     Dates: start: 20040630, end: 20040713
  2. CABERGOLINE [Suspect]
     Dosage: 2 MG/DAY, ORAL
     Route: 048
     Dates: start: 20040714, end: 20040720
  3. CABERGOLINE [Suspect]
     Dosage: 3 MG/DAY, ORAL
     Route: 048
     Dates: start: 20040721, end: 20040727
  4. CABERGOLINE [Suspect]
     Dosage: 4 MG/DAY, ORAL
     Route: 048
     Dates: start: 20040728, end: 20040924
  5. CABERGOLINE [Suspect]
     Dosage: 2MG/DAY
     Dates: start: 20040925, end: 20041006
  6. MADOPAR (BENSERAZIDE HYDROCHLORIDE) [Concomitant]
  7. DOMPERIDONE (DOMPERIDONE) [Concomitant]
  8. MIDODRINE HYDROCHLORIDE (MIDORINE HYDROCHLORIDE) [Concomitant]
  9. DOPS (DROXIDOPA) [Concomitant]
  10. TOPHARMIN (AMANTADINE HYDROCHLORIDE) [Concomitant]

REACTIONS (1)
  - LEUKOPENIA [None]
